FAERS Safety Report 6976666-9 (Version None)
Quarter: 2010Q3

REPORT INFORMATION
  Report Type: 
  Country: None (occurrence: None)
  Receive Date: 20100910
  Receipt Date: 20100831
  Transmission Date: 20110219
  Serious: Yes (Other)
  Sender: FDA-Public Use
  Company Number: US-PFIZER INC-2010110208

PATIENT

DRUGS (1)
  1. DILANTIN-125 [Suspect]

REACTIONS (1)
  - BLOOD PRESSURE INCREASED [None]
